FAERS Safety Report 16148562 (Version 3)
Quarter: 2019Q2

REPORT INFORMATION
  Report Type: Report from Study
  Country: CN (occurrence: CN)
  Receive Date: 20190402
  Receipt Date: 20190624
  Transmission Date: 20190711
  Serious: Yes (Death)
  Sender: FDA-Public Use
  Company Number: CN-ROCHE-2292832

PATIENT
  Age: 58 Year
  Sex: Male
  Weight: 57.5 kg

DRUGS (4)
  1. ATEZOLIZUMAB. [Suspect]
     Active Substance: ATEZOLIZUMAB
     Indication: HEPATOCELLULAR CARCINOMA
     Dosage: DATE OF MOST RECENT DOSE OF ATEZOLIZUMAB PRIOR TO AE ONSET: 07/MAR/2019
     Route: 042
     Dates: start: 20190123
  2. TENOFOVIR DISOPROXIL FUMARATE. [Concomitant]
     Active Substance: TENOFOVIR DISOPROXIL FUMARATE
     Indication: HEPATITIS B
     Route: 065
     Dates: start: 20181211
  3. BEVACIZUMAB. [Suspect]
     Active Substance: BEVACIZUMAB
     Indication: HEPATOCELLULAR CARCINOMA
     Dosage: DATE OF MOST RECENT DOSE OF BEVACIZUMAB (900 MG) PRIOR TO AE ONSET: 07/MAR/2019
     Route: 042
     Dates: start: 20190123
  4. OMNIPAQUE [Concomitant]
     Active Substance: IOHEXOL
     Dosage: CONTRAST AGENT
     Route: 065
     Dates: start: 20190306, end: 20190306

REACTIONS (1)
  - Gastrointestinal haemorrhage [Fatal]

NARRATIVE: CASE EVENT DATE: 20190325
